FAERS Safety Report 5477608-8 (Version None)
Quarter: 2007Q4

REPORT INFORMATION
  Report Type: 
  Country: None (occurrence: None)
  Receive Date: 20071005
  Receipt Date: 20070928
  Transmission Date: 20080405
  Serious: Yes (Hospitalization, Other)
  Sender: FDA-Public Use
  Company Number: KR-ELI_LILLY_AND_COMPANY-KR200708002163

PATIENT
  Sex: Male
  Weight: 41.5 kg

DRUGS (12)
  1. PEMETREXED [Suspect]
     Indication: NON-SMALL CELL LUNG CANCER
     Dosage: 500 MG/M2, DAY 1 EVERY 3 WEEKS
     Route: 042
     Dates: start: 20070803, end: 20070803
  2. FOLIC ACID [Concomitant]
     Indication: PROPHYLAXIS
     Dosage: 1 MG, UNK
     Route: 048
     Dates: start: 20070726
  3. VITAMIN B-12 [Concomitant]
     Indication: PROPHYLAXIS
     Dosage: 1 MG, UNK
     Route: 030
     Dates: start: 20070726, end: 20070726
  4. DEXAMETHASONE 0.5MG TAB [Concomitant]
     Indication: PROPHYLAXIS
     Dosage: 4 MG, UNK
     Route: 048
     Dates: start: 20070801, end: 20070804
  5. ITOPRIDE [Concomitant]
     Indication: FLATULENCE
     Dosage: 50 MG, 3/D
     Route: 065
     Dates: start: 20070804
  6. OXYCODONE HCL [Concomitant]
     Indication: ANALGESIA
     Dosage: 5 MG, DAILY (1/D)
     Route: 065
     Dates: start: 20070802
  7. OXYCODONE HCL [Concomitant]
     Dosage: 10 MG, 2/D
     Route: 065
     Dates: start: 20070803
  8. DURAGESIC-100 [Concomitant]
     Indication: ANALGESIA
     Dosage: 12 UG PER HOUR 1 PATCH/3 DAYS
     Route: 065
     Dates: start: 20070804
  9. ALMAGATE [Concomitant]
     Indication: ANTACID THERAPY
     Dosage: 1.5 G, 4/D
     Route: 065
     Dates: start: 20070803
  10. AMBROXOL [Concomitant]
     Indication: COUGH
     Dosage: 30 MG, 3/D
     Route: 065
     Dates: start: 20070726, end: 20070804
  11. LACTOBACILLUS ACIDOPHILUS [Concomitant]
     Indication: ANTIDIARRHOEAL SUPPORTIVE CARE
     Dosage: 300 NG, 3/D
     Route: 065
     Dates: start: 20070804
  12. RANITIDINE [Concomitant]
     Indication: ANTACID THERAPY
     Dosage: 150 MG, 2/D
     Route: 065
     Dates: start: 20070801

REACTIONS (3)
  - ANOREXIA [None]
  - LOSS OF CONSCIOUSNESS [None]
  - PNEUMONIA ASPIRATION [None]
